FAERS Safety Report 10417035 (Version 1)
Quarter: 2014Q3

REPORT INFORMATION
  Report Type: Spontaneous
  Country: FR (occurrence: None)
  Receive Date: 20140826
  Receipt Date: 20140826
  Transmission Date: 20150326
  Serious: Yes (Hospitalization)
  Sender: FDA-Public Use
  Company Number: B1016862A

PATIENT
  Age: 83 Year
  Sex: Female

DRUGS (6)
  1. CEFTRIAXONE SODIUM. [Suspect]
     Active Substance: CEFTRIAXONE SODIUM
     Indication: BRONCHITIS
     Route: 042
     Dates: start: 201401, end: 201401
  2. TROXERUTIN [Suspect]
     Active Substance: TROXERUTIN
     Indication: PRODUCT USED FOR UNKNOWN INDICATION
     Route: 048
  3. POTASSIUM CHLORIDE. [Suspect]
     Active Substance: POTASSIUM CHLORIDE
     Indication: HYPOKALAEMIA
     Dosage: 1 UNIT TWICE PER DAY ORAL
     Route: 048
  4. PIASCLEDINE [Suspect]
     Active Substance: AVOCADO OIL\SOYBEAN OIL
     Indication: PRODUCT USED FOR UNKNOWN INDICATION
     Route: 048
  5. CALCIUM CARBONATE (FORMULATION UNKNOWN) (CALCIUM CARBONATE) [Suspect]
     Active Substance: CALCIUM CARBONATE
     Indication: HYPOCALCAEMIA
     Route: 048
  6. PAROXETINE HYDROCHLORIDE. [Suspect]
     Active Substance: PAROXETINE HYDROCHLORIDE
     Indication: DEPRESSION
     Route: 048
     Dates: start: 20140417

REACTIONS (3)
  - Renal tubular necrosis [None]
  - Renal failure [None]
  - Tubulointerstitial nephritis [None]

NARRATIVE: CASE EVENT DATE: 201405
